FAERS Safety Report 9264218 (Version 1)
Quarter: 2013Q2

REPORT INFORMATION
  Report Type: Spontaneous
  Country: GB (occurrence: GB)
  Receive Date: 20130430
  Receipt Date: 20130430
  Transmission Date: 20140414
  Serious: Yes (Other)
  Sender: FDA-Public Use
  Company Number: GB-B.I. PHARMACEUTICALS,INC./RIDGEFIELD-2013-UK-00655UK

PATIENT
  Age: 83 Year
  Sex: Male
  Weight: 85 kg

DRUGS (8)
  1. PRADAXA [Suspect]
     Indication: ATRIAL FIBRILLATION
     Dosage: 110 MG
     Route: 048
     Dates: start: 20120803, end: 20120814
  2. AMIODARONE [Concomitant]
     Indication: ATRIAL FIBRILLATION
     Dosage: 200 MG
     Route: 048
     Dates: start: 20111202
  3. FRUSEMIDE [Concomitant]
  4. PARACETAMOL [Concomitant]
  5. VENTOLIN [Concomitant]
  6. CANDESARTAN [Concomitant]
     Indication: LEFT VENTRICULAR FAILURE
     Dosage: 8 MG
     Route: 048
     Dates: start: 20070508
  7. SIMVASTATIN [Concomitant]
     Indication: MYOCARDIAL ISCHAEMIA
     Dosage: 40 MG
     Route: 048
     Dates: start: 20060504, end: 20121012
  8. SPIRONOLACTONE [Concomitant]
     Indication: CARDIAC FAILURE
     Dosage: 25 MG
     Route: 048
     Dates: start: 20070508

REACTIONS (1)
  - Fatigue [Recovered/Resolved with Sequelae]
